FAERS Safety Report 4844778-1 (Version None)
Quarter: 2005Q4

REPORT INFORMATION
  Report Type: 
  Country: None (occurrence: None)
  Receive Date: 20051205
  Receipt Date: 20051129
  Transmission Date: 20060501
  Serious: Yes (Death, Other)
  Sender: FDA-Public Use
  Company Number: MX-BRISTOL-MYERS SQUIBB COMPANY-13198973

PATIENT
  Age: 82 Year
  Sex: Female

DRUGS (3)
  1. CISPLATIN [Suspect]
     Indication: GASTRIC CANCER
     Dosage: STARTED ON 21-JUL-05
     Route: 042
     Dates: start: 20051020, end: 20051020
  2. FLUOROURACIL [Suspect]
     Indication: GASTRIC CANCER
     Dosage: STARTED ON 21-JUL-05.
     Route: 042
     Dates: start: 20051020, end: 20051024
  3. COUMADIN [Concomitant]
     Indication: THROMBOSIS PROPHYLAXIS
     Dates: start: 20051101

REACTIONS (4)
  - OBSTRUCTIVE AIRWAYS DISORDER [None]
  - RENAL FAILURE [None]
  - RESPIRATORY DISTRESS [None]
  - THROMBOSIS [None]
